FAERS Safety Report 14264674 (Version 5)
Quarter: 2020Q2

REPORT INFORMATION
  Report Type: Spontaneous
  Country: US (occurrence: US)
  Receive Date: 20171208
  Receipt Date: 20200505
  Transmission Date: 20200713
  Serious: No
  Sender: FDA-Public Use
  Company Number: US-VIFOR (INTERNATIONAL) INC.-VIT-2017-09111

PATIENT
  Age: 68 Year
  Sex: Female

DRUGS (19)
  1. VELTASSA [Suspect]
     Active Substance: PATIROMER
     Dosage: DOSE REDUCED
  2. EMLA [Concomitant]
     Active Substance: LIDOCAINE\PRILOCAINE
  3. METOPROLOL TARTRATE. [Concomitant]
     Active Substance: METOPROLOL TARTRATE
  4. FUROSEMIDE. [Concomitant]
     Active Substance: FUROSEMIDE
  5. ELIQUIS [Concomitant]
     Active Substance: APIXABAN
  6. ERGOCALCIFEROL~~RETINOL~~CALCIUM CARBONATE [Concomitant]
  7. ACETYLSALICYLIC ACID [Concomitant]
     Active Substance: ASPIRIN
  8. LISINOPRIL. [Concomitant]
     Active Substance: LISINOPRIL
  9. EPOGEN [Concomitant]
     Active Substance: ERYTHROPOIETIN
  10. ERGOCALCIFEROL. [Concomitant]
     Active Substance: ERGOCALCIFEROL
  11. SODIUM CHLORIDE. [Concomitant]
     Active Substance: SODIUM CHLORIDE
  12. AMLODIPINE BESILATE [Concomitant]
     Active Substance: AMLODIPINE BESYLATE
  13. ATORVASTATIN CALCIUM. [Concomitant]
     Active Substance: ATORVASTATIN CALCIUM
  14. VELTASSA [Suspect]
     Active Substance: PATIROMER
     Route: 048
     Dates: start: 20180323
  15. OMEPRAZOLE. [Concomitant]
     Active Substance: OMEPRAZOLE
  16. METRONIDAZOLE. [Concomitant]
     Active Substance: METRONIDAZOLE
  17. VELTASSA [Suspect]
     Active Substance: PATIROMER
     Indication: HYPERKALAEMIA
     Route: 048
     Dates: start: 20170519
  18. LEVOFLOXACIN. [Concomitant]
     Active Substance: LEVOFLOXACIN
  19. TYLENOL [Concomitant]
     Active Substance: ACETAMINOPHEN

REACTIONS (6)
  - Back pain [Unknown]
  - Diarrhoea [Unknown]
  - Blood potassium decreased [Unknown]
  - Adverse event [Unknown]
  - Off label use [Unknown]
  - Product dose omission [Unknown]

NARRATIVE: CASE EVENT DATE: 201708
